FAERS Safety Report 19936140 (Version 1)
Quarter: 2021Q4

REPORT INFORMATION
  Report Type: Spontaneous
  Country: FR (occurrence: FR)
  Receive Date: 20211009
  Receipt Date: 20211009
  Transmission Date: 20220303
  Serious: Yes (Hospitalization, Disabling, Congenital Anomaly, Other)
  Sender: FDA-Public Use
  Company Number: FR-ABBVIE-21K-056-4108898-00

PATIENT
  Sex: Female
  Weight: 2.8 kg

DRUGS (3)
  1. VALPROATE SODIUM [Suspect]
     Active Substance: VALPROATE SODIUM
     Indication: Maternal exposure timing unspecified
     Route: 064
  2. FOLIC ACID [Concomitant]
     Active Substance: FOLIC ACID
     Indication: Maternal exposure timing unspecified
  3. SPASFON [Concomitant]
     Indication: Maternal exposure timing unspecified

REACTIONS (50)
  - Asthmatic crisis [Unknown]
  - Cough [Unknown]
  - Foetal anticonvulsant syndrome [Unknown]
  - Nasal congestion [Unknown]
  - Ear infection [Unknown]
  - Bronchiolitis [Unknown]
  - Cushingoid [Unknown]
  - Bronchitis [Unknown]
  - Gastrooesophageal reflux disease [Unknown]
  - Dysarthria [Unknown]
  - Atopy [Unknown]
  - Speech disorder developmental [Unknown]
  - Learning disability [Unknown]
  - Attention deficit hyperactivity disorder [Unknown]
  - Dyspraxia [Unknown]
  - Hypermobility syndrome [Unknown]
  - Pectus excavatum [Unknown]
  - Enuresis [Unknown]
  - Autism spectrum disorder [Unknown]
  - Fine motor delay [Unknown]
  - IIIrd nerve disorder [Unknown]
  - Strabismus [Not Recovered/Not Resolved]
  - Astigmatism [Unknown]
  - Mental disorder [Not Recovered/Not Resolved]
  - Knee deformity [Unknown]
  - Sensorimotor disorder [Unknown]
  - Fatigue [Unknown]
  - Dacryostenosis acquired [Recovered/Resolved]
  - Childhood asthma [Unknown]
  - Musculoskeletal disorder [Not Recovered/Not Resolved]
  - Growth retardation [Unknown]
  - Limb asymmetry [Unknown]
  - Personality change [Unknown]
  - Autoimmune thyroiditis [Not Recovered/Not Resolved]
  - Pasteurella infection [Recovered/Resolved]
  - Learning disorder [Unknown]
  - Speech disorder developmental [Unknown]
  - Psychomotor retardation [Unknown]
  - Emotional disorder [Unknown]
  - Attention deficit hyperactivity disorder [Unknown]
  - Petit mal epilepsy [Unknown]
  - Dysmorphism [Unknown]
  - Electroencephalogram abnormal [Unknown]
  - Dysgraphia [Unknown]
  - Social avoidant behaviour [Unknown]
  - Adenoidal disorder [Unknown]
  - Bone disorder [Unknown]
  - Educational problem [Unknown]
  - Foetal exposure during pregnancy [Unknown]
  - Nasopharyngitis [Unknown]

NARRATIVE: CASE EVENT DATE: 20020101
